FAERS Safety Report 15577925 (Version 2)
Quarter: 2018Q4

REPORT INFORMATION
  Report Type: Spontaneous
  Country: US (occurrence: US)
  Receive Date: 20181102
  Receipt Date: 20181114
  Transmission Date: 20190205
  Serious: No
  Sender: FDA-Public Use
  Company Number: US-PFIZER INC-2018441506

PATIENT
  Sex: Female

DRUGS (1)
  1. LYRICA [Suspect]
     Active Substance: PREGABALIN
     Dosage: FOUR A DAY

REACTIONS (4)
  - Crying [Unknown]
  - Pain [Unknown]
  - Frustration tolerance decreased [Unknown]
  - Agitation [Unknown]
